FAERS Safety Report 6817867-X (Version None)
Quarter: 2010Q3

REPORT INFORMATION
  Report Type: 
  Country: None (occurrence: None)
  Receive Date: 20100706
  Receipt Date: 20100701
  Transmission Date: 20110219
  Serious: Yes (Hospitalization, Other)
  Sender: FDA-Public Use
  Company Number: US-MERCK-0811USA00819

PATIENT
  Age: 53 Year
  Sex: Female
  Weight: 53 kg

DRUGS (6)
  1. FOSAMAX [Suspect]
     Indication: OSTEOPOROSIS
     Route: 048
     Dates: start: 19960809, end: 20010301
  2. FOSAMAX [Suspect]
     Route: 048
     Dates: start: 20010306, end: 20060223
  3. FOSAMAX [Suspect]
     Route: 048
     Dates: start: 20060101
  4. FOSAMAX [Suspect]
     Indication: OSTEOPENIA
     Route: 048
     Dates: start: 19960809, end: 20010301
  5. FOSAMAX [Suspect]
     Route: 048
     Dates: start: 20010306, end: 20060223
  6. FOSAMAX [Suspect]
     Route: 048
     Dates: start: 20060101

REACTIONS (43)
  - ARTHRITIS [None]
  - ASTHENIA [None]
  - BONE PAIN [None]
  - BREAST DISORDER [None]
  - BREAST MASS [None]
  - COORDINATION ABNORMAL [None]
  - COUGH [None]
  - DEPRESSION [None]
  - DRY EYE [None]
  - FATIGUE [None]
  - FEMUR FRACTURE [None]
  - FIBROADENOMA OF BREAST [None]
  - FIBROCYSTIC BREAST DISEASE [None]
  - FOOT FRACTURE [None]
  - GAIT DISTURBANCE [None]
  - GASTRITIS [None]
  - HAEMORRHOIDS [None]
  - HYPERCHOLESTEROLAEMIA [None]
  - HYPERTENSION [None]
  - INCORRECT DOSE ADMINISTERED [None]
  - INSOMNIA [None]
  - INTERVERTEBRAL DISC PROTRUSION [None]
  - IRRITABLE BOWEL SYNDROME [None]
  - JOINT EFFUSION [None]
  - JOINT SPRAIN [None]
  - LOW TURNOVER OSTEOPATHY [None]
  - MUSCLE ATROPHY [None]
  - MYOSITIS [None]
  - NERVE ROOT COMPRESSION [None]
  - OESTROGEN DEFICIENCY [None]
  - OSTEOARTHRITIS [None]
  - OSTEOMALACIA [None]
  - OSTEOPENIA [None]
  - OVARIAN FAILURE [None]
  - PAIN [None]
  - PAIN IN EXTREMITY [None]
  - PERINEURIAL CYST [None]
  - RADICULOPATHY [None]
  - SINUS DISORDER [None]
  - SPINAL OSTEOARTHRITIS [None]
  - SYNOVIAL CYST [None]
  - UTERINE LEIOMYOMA [None]
  - VITAMIN D DEFICIENCY [None]
